FAERS Safety Report 16639494 (Version 3)
Quarter: 2019Q3

REPORT INFORMATION
  Report Type: Spontaneous
  Country: US (occurrence: US)
  Receive Date: 20190726
  Receipt Date: 20190820
  Transmission Date: 20191004
  Serious: No
  Sender: FDA-Public Use
  Company Number: PHEH2019US030954

PATIENT
  Age: 53 Year
  Sex: Male
  Weight: 100.23 kg

DRUGS (1)
  1. ENTRESTO [Suspect]
     Active Substance: SACUBITRIL\VALSARTAN
     Indication: CARDIAC FAILURE
     Dosage: UNK UNK, Q12H
     Route: 048
     Dates: start: 20190522, end: 20190723

REACTIONS (3)
  - Swollen tongue [Recovered/Resolved]
  - Hypoaesthesia oral [Unknown]
  - Lip swelling [Recovered/Resolved]

NARRATIVE: CASE EVENT DATE: 20190522
